FAERS Safety Report 4378396-9 (Version None)
Quarter: 2004Q2

REPORT INFORMATION
  Report Type: 
  Country: None (occurrence: None)
  Receive Date: 20040609
  Receipt Date: 20040603
  Transmission Date: 20050107
  Serious: Yes (Death)
  Sender: FDA-Public Use
  Company Number: USA-2004-0013430

PATIENT
  Age: 62 Year
  Sex: Male
  Weight: 65.8 kg

DRUGS (11)
  1. OXYCODONE HCL [Suspect]
  2. MORPHINE SULFATE [Suspect]
     Indication: PAIN
  3. HYDROMORPHONE HCL [Suspect]
  4. CITALOPRAM [Suspect]
  5. PROMETHAZINE [Suspect]
  6. DIPHENHYDRAMINE HCL [Suspect]
  7. IBUPROFEN [Suspect]
  8. NICOTINE [Suspect]
  9. CAFFEINE (CAFFEINE) [Suspect]
  10. HYDROCODONE BITARTRATE [Suspect]
  11. FLEXERIL [Concomitant]

REACTIONS (10)
  - CARDIAC ARREST [None]
  - CARDIOMEGALY [None]
  - CIRCULATORY COLLAPSE [None]
  - CORONARY ARTERY ATHEROSCLEROSIS [None]
  - DRUG SCREEN POSITIVE [None]
  - EMPHYSEMA [None]
  - MYOCARDIAL FIBROSIS [None]
  - MYOCARDIAL ISCHAEMIA [None]
  - STENT OCCLUSION [None]
  - SUDDEN DEATH [None]
